FAERS Safety Report 17418389 (Version 1)
Quarter: 2020Q1

REPORT INFORMATION
  Report Type: Spontaneous
  Country: US (occurrence: US)
  Receive Date: 20200214
  Receipt Date: 20200214
  Transmission Date: 20200409
  Serious: Yes (Hospitalization)
  Sender: FDA-Public Use
  Company Number: US-ASTRAZENECA-2020SE21401

PATIENT
  Age: 228 Day
  Sex: Male

DRUGS (2)
  1. SYNAGIS [Suspect]
     Active Substance: PALIVIZUMAB
     Indication: FALLOT^S TETRALOGY
     Route: 030
     Dates: start: 20200117
  2. SYNAGIS [Suspect]
     Active Substance: PALIVIZUMAB
     Indication: FALLOT^S TETRALOGY
     Route: 030
     Dates: start: 20200116

REACTIONS (1)
  - Respiratory syncytial virus infection [Unknown]

NARRATIVE: CASE EVENT DATE: 20200127
